FAERS Safety Report 13795799 (Version 2)
Quarter: 2018Q2

REPORT INFORMATION
  Report Type: Spontaneous
  Country: JP (occurrence: JP)
  Receive Date: 20170726
  Receipt Date: 20180401
  Transmission Date: 20180711
  Serious: Yes (Life-Threatening)
  Sender: FDA-Public Use
  Company Number: JP-MALLINCKRODT-T201703058

PATIENT
  Age: 37 Year
  Sex: Female
  Weight: 46 kg

DRUGS (34)
  1. GASTER [Concomitant]
     Active Substance: FAMOTIDINE
     Indication: PRODUCT USED FOR UNKNOWN INDICATION
     Dosage: UNK
     Route: 065
  2. MAGSENT [Concomitant]
     Active Substance: DEXTROSE\MAGNESIUM SULFATE HEPTAHYDRATE
     Dosage: 13ML/HOUR
     Route: 041
     Dates: start: 20160925
  3. RINDERON V [Concomitant]
     Active Substance: BETAMETHASONE VALERATE
     Indication: PRODUCT USED FOR UNKNOWN INDICATION
     Dosage: 6 DOSAGE FORMULATION (DF)
     Route: 030
     Dates: start: 20160914, end: 20160915
  4. BUSCOPAN [Concomitant]
     Active Substance: BUTYLSCOPOLAMINE BROMIDE
     Indication: PAIN
     Dosage: 1 DOSAGE FORMULATION (DF)
     Route: 030
     Dates: start: 20160914, end: 20160914
  5. PIPERACILLIN SODIUM [Concomitant]
     Active Substance: PIPERACILLIN SODIUM
     Indication: PRODUCT USED FOR UNKNOWN INDICATION
     Dosage: 3 DOSAGE FORMULATION (DF), 1 DOSAGE FORMULATION (DF)
     Route: 041
     Dates: start: 20160914, end: 20160917
  6. VEEN D [Concomitant]
     Active Substance: CALCIUM CHLORIDE\DEXTROSE\POTASSIUM CHLORIDE\SODIUM ACETATE\SODIUM CHLORIDE
     Dosage: 1 DOSAGE FORMULATION (DF)
     Route: 041
     Dates: start: 20160917, end: 20160917
  7. ISOTONIC SODIUM CHLORIDE SOLUTION [Concomitant]
     Active Substance: SODIUM CHLORIDE
     Indication: PRODUCT USED FOR UNKNOWN INDICATION
     Dosage: 1 DOSAGE FORMULATION (DF)
     Route: 042
     Dates: start: 20160915, end: 20160917
  8. PICOSULFATE NA [Concomitant]
     Active Substance: SODIUM PICOSULFATE
     Indication: PRODUCT USED FOR UNKNOWN INDICATION
     Dosage: 10 DOSAGE FORMULATION (DF)/ 10 ML 10 DROPS EACH TIME
     Route: 048
     Dates: start: 20161121
  9. MAGSENT [Concomitant]
     Active Substance: DEXTROSE\MAGNESIUM SULFATE HEPTAHYDRATE
     Dosage: 15L/HOUR
     Route: 041
     Dates: start: 20160927, end: 20161120
  10. FESIN [Concomitant]
     Active Substance: IRON SUCROSE
     Indication: PRODUCT USED FOR UNKNOWN INDICATION
     Dosage: 2 DOSAGE FORMULATION (DF)
     Route: 042
     Dates: start: 20160916, end: 20160917
  11. OMEPRAZOLE SODIUM [Suspect]
     Active Substance: OMEPRAZOLE SODIUM
     Indication: PRODUCT USED FOR UNKNOWN INDICATION
     Dosage: 1 DOSAGE FORMULATION
     Route: 042
     Dates: start: 20160915, end: 20160917
  12. GLUCOSE [Concomitant]
     Active Substance: DEXTROSE
     Indication: PRODUCT USED FOR UNKNOWN INDICATION
     Dosage: 1 DOSAGE FORMULATION (DF)
     Route: 041
     Dates: start: 20160914, end: 20160917
  13. PANTOSIN [Concomitant]
     Active Substance: PANTETHINE
     Dosage: 1 DOSAGE FORMULATION (DF)
     Route: 042
     Dates: start: 20160917, end: 20160917
  14. OFIRMEV [Suspect]
     Active Substance: ACETAMINOPHEN
     Indication: PAIN
     Dosage: 3000 MG (3/1 DAY)
     Route: 042
     Dates: start: 20160916, end: 20160916
  15. UTEMERIN [Concomitant]
     Active Substance: RITODRINE
     Indication: PRODUCT USED FOR UNKNOWN INDICATION
     Dosage: 3 DOSAGE FORMULATION (DF)
     Route: 041
     Dates: start: 20160914, end: 20160917
  16. BUSCOPAN [Concomitant]
     Active Substance: BUTYLSCOPOLAMINE BROMIDE
     Dosage: 1 DOSAGE FORMULATION (DF)
     Route: 030
     Dates: start: 20160916, end: 20160916
  17. SOLULACT [Concomitant]
     Indication: PRODUCT USED FOR UNKNOWN INDICATION
     Dosage: 2 DOSAGE FORMULATION (DF), 1  DOSAGE FORMULATION (DF)
     Route: 041
     Dates: start: 20160914, end: 20160915
  18. SOLDEM 3AG [Concomitant]
     Indication: PRODUCT USED FOR UNKNOWN INDICATION
     Dosage: 1 DOSAGE FORMULATION (DF)
     Route: 041
     Dates: start: 20160916, end: 20160917
  19. OFIRMEV [Suspect]
     Active Substance: ACETAMINOPHEN
     Dosage: 1000 MG (1/1 DAY)
     Route: 042
     Dates: start: 20160917, end: 20160917
  20. OFIRMEV [Suspect]
     Active Substance: ACETAMINOPHEN
     Dosage: 3000 MG (3/1 DAY)
     Route: 042
     Dates: start: 20160918, end: 20160918
  21. PENTAZOCINE [Suspect]
     Active Substance: PENTAZOCINE
     Indication: PAIN
     Dosage: 1 DOSAGE FORMULATION (DF)
     Route: 030
     Dates: start: 20160914, end: 20160915
  22. OMEPRAZOLE SODIUM [Suspect]
     Active Substance: OMEPRAZOLE SODIUM
     Dosage: 1 DOSAGE FORMULATION
     Route: 042
     Dates: start: 20160914, end: 20160914
  23. MAGSENT [Concomitant]
     Active Substance: DEXTROSE\MAGNESIUM SULFATE HEPTAHYDRATE
     Dosage: 330MG 3 TABLETS 3 TIMES A DAY AFTER EACH MEAL
     Route: 041
  24. ISOTONIC SODIUM CHLORIDE SOLUTION [Concomitant]
     Active Substance: SODIUM CHLORIDE
     Dosage: UNK
     Route: 042
     Dates: start: 20160915, end: 20160917
  25. ISOTONIC SODIUM CHLORIDE SOLUTION [Concomitant]
     Active Substance: SODIUM CHLORIDE
     Dosage: UNK
     Route: 042
     Dates: start: 20160916, end: 20160917
  26. TSUMURA DAIKENCHUTO EXTRACT GRANULES FOR ETHICAL USE [Concomitant]
     Active Substance: HERBALS
     Indication: PRODUCT USED FOR UNKNOWN INDICATION
     Dosage: 15 MG, THREE TIME A DAY BEFORE EACH MEAL
     Route: 048
     Dates: start: 20161121, end: 20161127
  27. GLUCOSE [Concomitant]
     Active Substance: DEXTROSE
     Indication: PRODUCT USED FOR UNKNOWN INDICATION
     Dosage: 1 DF
     Route: 042
     Dates: start: 20160916, end: 20160917
  28. MAGSENT [Concomitant]
     Active Substance: DEXTROSE\MAGNESIUM SULFATE HEPTAHYDRATE
     Indication: PRODUCT USED FOR UNKNOWN INDICATION
     Dosage: 1 DOSAGE FORMULATION, 10ML/HOUR
     Route: 041
     Dates: start: 20160916, end: 20160917
  29. VEEN D [Concomitant]
     Active Substance: CALCIUM CHLORIDE\DEXTROSE\POTASSIUM CHLORIDE\SODIUM ACETATE\SODIUM CHLORIDE
     Indication: PRODUCT USED FOR UNKNOWN INDICATION
     Dosage: 1 DOSAGE FORMULATION (DF)
     Route: 041
     Dates: start: 20160916, end: 20160916
  30. PANTOSIN [Concomitant]
     Active Substance: PANTETHINE
     Indication: PRODUCT USED FOR UNKNOWN INDICATION
     Dosage: 1 DOSAGE FORMULATION (DF)
     Route: 042
     Dates: start: 20160915, end: 20160916
  31. LECICARBON [Concomitant]
     Active Substance: SODIUM BICARBONATE\SODIUM PHOSPHATE, MONOBASIC
     Indication: PAIN
     Dosage: UNK, AS NEEDED
     Route: 054
     Dates: start: 20160914
  32. SOLULACT [Concomitant]
     Dosage: 1  DOSAGE FORMULATION (DF)
     Route: 041
     Dates: start: 20160916, end: 20160916
  33. BFLUID [Concomitant]
     Active Substance: AMINO ACIDS\DEXTROSE\ELECTROLYTES NOS\VITAMINS
     Indication: PRODUCT USED FOR UNKNOWN INDICATION
     Dosage: 1 DOSAGE FORMULATION (DF)
     Route: 041
     Dates: start: 20160914, end: 20160917
  34. MAGMITT [Concomitant]
     Active Substance: MAGNESIUM OXIDE
     Indication: CONSTIPATION
     Dosage: 330 MG,  110 MG
     Route: 048
     Dates: start: 20161121, end: 20161127

REACTIONS (2)
  - Tricuspid valve incompetence [Unknown]
  - Ductus arteriosus stenosis foetal [Recovering/Resolving]

NARRATIVE: CASE EVENT DATE: 20160920
